FAERS Safety Report 24691096 (Version 1)
Quarter: 2024Q4

REPORT INFORMATION
  Report Type: Spontaneous
  Country: US (occurrence: None)
  Receive Date: 20241202
  Receipt Date: 20241202
  Transmission Date: 20250114
  Serious: Yes (Other)
  Sender: Public
  Company Number: None

PATIENT
  Age: 38 Year
  Sex: Female
  Weight: 80 kg

DRUGS (1)
  1. PRIVIGEN [Suspect]
     Active Substance: HUMAN IMMUNOGLOBULIN G
     Dosage: 80 G (GRAM(S)  EVERY 4 WEEKS  INTRAVENOUS?
     Route: 042

REACTIONS (4)
  - Dizziness [None]
  - Fatigue [None]
  - Heart rate irregular [None]
  - Discomfort [None]

NARRATIVE: CASE EVENT DATE: 20241023
